FAERS Safety Report 9173335 (Version 1)
Quarter: 2013Q1

REPORT INFORMATION
  Report Type: Spontaneous
  Country: US (occurrence: None)
  Receive Date: 20130313
  Receipt Date: 20130313
  Transmission Date: 20140127
  Serious: Yes (Hospitalization)
  Sender: FDA-Public Use
  Company Number: AUR-APL-2013-02044

PATIENT
  Age: 86 Year
  Sex: Female

DRUGS (9)
  1. LISINOPRIL (LISINOPRIL) [Suspect]
     Indication: PRODUCT USED FOR UNKNOWN INDICATION
     Route: 048
  2. ATENOLOL (ATENOLOL) [Suspect]
     Indication: PRODUCT USED FOR UNKNOWN INDICATION
     Route: 048
  3. NEXIUM (ESOMEPRAZOLE MAGNESIUM) [Suspect]
     Indication: PRODUCT USED FOR UNKNOWN INDICATION
     Dosage: ORAL
     Route: 048
  4. HYDROCHLOROTHIAZIDE (HYDROCHLOROTHIAZIDE) [Concomitant]
  5. WARFARIN (WARFARIN) [Concomitant]
  6. FUROSEMIDE (FUROSEMIDE) [Concomitant]
  7. AMLODIPINE BESILATE (AMLODIPINE BESILATE) [Concomitant]
  8. ALBUTEROL (SALBUTAMOL) [Concomitant]
  9. OSCAL 500-D (CALCIUM D3) [Concomitant]

REACTIONS (5)
  - Asthenia [None]
  - Chest pain [None]
  - Pneumonia [None]
  - Blood pressure increased [None]
  - Drug dose omission [None]
